FAERS Safety Report 5816978-5 (Version None)
Quarter: 2008Q3

REPORT INFORMATION
  Report Type: 
  Country: None (occurrence: None)
  Receive Date: 20080722
  Receipt Date: 20080715
  Transmission Date: 20090109
  Serious: Yes (Hospitalization)
  Sender: FDA-Public Use
  Company Number: FR-JNJFOC-20080703423

PATIENT
  Age: 85 Year
  Sex: Female

DRUGS (14)
  1. OFLOCET [Suspect]
     Indication: INFECTION
     Route: 042
  2. CORTANCYL [Suspect]
     Indication: TEMPORAL ARTERITIS
     Route: 048
  3. CLAFORAN [Suspect]
     Indication: INFECTION
     Route: 042
  4. FLAGYL [Suspect]
     Indication: INFECTION
     Route: 048
  5. RULID [Suspect]
     Indication: INFECTION
     Route: 048
  6. ENDOXAN [Suspect]
     Indication: TEMPORAL ARTERITIS
     Route: 042
  7. UROMITEXAN [Suspect]
     Indication: CYSTITIS HAEMORRHAGIC
     Route: 042
  8. BACTRIM [Suspect]
     Indication: INFECTION
     Route: 048
  9. AUGMENTIN '125' [Suspect]
     Indication: INFECTION
     Route: 048
  10. ACTONEL [Concomitant]
     Indication: DRUG USE FOR UNKNOWN INDICATION
     Route: 048
  11. LEVOTHYROX [Concomitant]
     Route: 048
  12. CACIT D3 [Concomitant]
     Route: 048
  13. KARDEGIC [Concomitant]
     Route: 048
  14. NEXIUM [Concomitant]
     Route: 048

REACTIONS (15)
  - AGRANULOCYTOSIS [None]
  - ANAEMIA [None]
  - BLOOD PRESSURE INCREASED [None]
  - CONFUSIONAL STATE [None]
  - ILL-DEFINED DISORDER [None]
  - LEUKOPENIA [None]
  - LIVEDO RETICULARIS [None]
  - LUNG DISORDER [None]
  - LYMPHOPENIA [None]
  - POLYURIA [None]
  - PYELONEPHRITIS [None]
  - PYREXIA [None]
  - SIGMOIDITIS [None]
  - TACHYCARDIA [None]
  - TREMOR [None]
